FAERS Safety Report 7407030-6 (Version None)
Quarter: 2011Q2

REPORT INFORMATION
  Report Type: 
  Country: None (occurrence: None)
  Receive Date: 20110411
  Receipt Date: 20101018
  Transmission Date: 20111010
  Serious: Yes (Hospitalization, Other)
  Sender: FDA-Public Use
  Company Number: US-BAYER-201033783NA

PATIENT
  Age: 39 Year
  Sex: Female
  Weight: 65.76 kg

DRUGS (10)
  1. HYDROXYZINE [Concomitant]
     Indication: URTICARIA
     Dosage: 25 MG, UNK
  2. YASMIN [Suspect]
     Indication: PRODUCT USED FOR UNKNOWN INDICATION
     Dosage: UNK
     Route: 048
     Dates: start: 19990101, end: 20050101
  3. PROPRANOLOL [Concomitant]
     Indication: MIGRAINE
     Dosage: UNK
     Dates: start: 20040101
  4. IMITREX [Concomitant]
     Indication: MIGRAINE
  5. OXYBUTYNIN [Concomitant]
     Indication: BLADDER DISORDER
     Dosage: UNK
     Dates: start: 20040101
  6. VICODIN [Concomitant]
     Indication: PAIN
  7. ALLEGRA [Concomitant]
     Dosage: 180 MG, UNK
  8. DITROPAN XL [Concomitant]
     Dosage: 15 MG, UNK
  9. VOLTAREN [Concomitant]
  10. INDERAL [Concomitant]

REACTIONS (3)
  - PERIPHERAL ISCHAEMIA [None]
  - VARICOSE VEIN [None]
  - THROMBOSIS [None]
